FAERS Safety Report 6394481-4 (Version None)
Quarter: 2009Q4

REPORT INFORMATION
  Report Type: 
  Country: None (occurrence: None)
  Receive Date: 20091009
  Receipt Date: 20091001
  Transmission Date: 20100525
  Serious: Yes (Hospitalization, Other)
  Sender: FDA-Public Use
  Company Number: BR-ABBOTT-09P-020-0595644-00

PATIENT
  Age: 15 Year
  Sex: Male

DRUGS (4)
  1. DEPAKOTE ER [Suspect]
     Indication: INFANTILE SPASMS
     Route: 048
  2. PRIMIDONE [Concomitant]
     Indication: DRUG USE FOR UNKNOWN INDICATION
  3. OXCARBAZEPINE [Concomitant]
     Indication: DRUG USE FOR UNKNOWN INDICATION
  4. CLOBAZAM [Concomitant]
     Indication: DRUG USE FOR UNKNOWN INDICATION

REACTIONS (6)
  - COLD AGGLUTININS POSITIVE [None]
  - EXTRADURAL HAEMATOMA [None]
  - FALL [None]
  - HEAD INJURY [None]
  - MUSCLE SPASMS [None]
  - OPEN WOUND [None]
